FAERS Safety Report 18473460 (Version 1)
Quarter: 2020Q4

REPORT INFORMATION
  Report Type: Other
  Country: NO (occurrence: NO)
  Receive Date: 20201106
  Receipt Date: 20201106
  Transmission Date: 20210114
  Serious: Yes (Hospitalization)
  Sender: FDA-Public Use
  Company Number: NO-ROCHE-1910705

PATIENT
  Age: 74 Year
  Sex: Female

DRUGS (6)
  1. IBANDRONIC ACID. [Suspect]
     Active Substance: IBANDRONIC ACID
     Indication: RESORPTION BONE INCREASED
  2. ALENDRONATE [Suspect]
     Active Substance: ALENDRONATE SODIUM
     Indication: RESORPTION BONE INCREASED
     Route: 065
     Dates: start: 2008
  3. DENOSUMAB [Suspect]
     Active Substance: DENOSUMAB
     Indication: HUMERUS FRACTURE
     Dosage: RCEIVED IN TWO DOSES
     Route: 065
     Dates: start: 201212, end: 201312
  4. ALENDRONATE [Suspect]
     Active Substance: ALENDRONATE SODIUM
     Indication: HUMERUS FRACTURE
     Route: 048
     Dates: start: 2006
  5. IBANDRONIC ACID. [Suspect]
     Active Substance: IBANDRONIC ACID
     Indication: HUMERUS FRACTURE
     Route: 048
     Dates: start: 2008
  6. DENOSUMAB [Suspect]
     Active Substance: DENOSUMAB
     Indication: RESORPTION BONE INCREASED

REACTIONS (4)
  - Gastrointestinal disorder [Unknown]
  - Bone density decreased [Unknown]
  - Atypical femur fracture [Unknown]
  - Drug ineffective [Unknown]

NARRATIVE: CASE EVENT DATE: 201311
